FAERS Safety Report 17452276 (Version 1)
Quarter: 2020Q1

REPORT INFORMATION
  Report Type: Spontaneous
  Country: CN (occurrence: CN)
  Receive Date: 20200224
  Receipt Date: 20200224
  Transmission Date: 20200409
  Serious: Yes (Death, Other)
  Sender: FDA-Public Use
  Company Number: CN-PFIZER INC-2020078599

PATIENT
  Age: 55 Year
  Sex: Female

DRUGS (5)
  1. IRINOTECAN HCL [Suspect]
     Active Substance: IRINOTECAN HYDROCHLORIDE
     Indication: RECTAL CANCER METASTATIC
     Dosage: 180 MG/M2, IV, DAY 1
     Route: 042
     Dates: start: 2016
  2. FLUOROURACIL. [Suspect]
     Active Substance: FLUOROURACIL
     Dosage: 1200 MG/M2/D X 2 DAYS IV CONTINUOUS INFUSION
     Route: 041
     Dates: start: 2016
  3. FOLINIC ACID [Suspect]
     Active Substance: LEUCOVORIN
     Indication: RECTAL CANCER METASTATIC
     Dosage: 400 MG/M2, IV DAY 1
     Route: 042
     Dates: start: 2016
  4. BEVACIZUMAB. [Suspect]
     Active Substance: BEVACIZUMAB
     Indication: RECTAL CANCER METASTATIC
     Dosage: 5 MG/KG IV DAY 1, EVERY 2 WEEKS
     Route: 042
     Dates: start: 2016
  5. FLUOROURACIL. [Suspect]
     Active Substance: FLUOROURACIL
     Indication: RECTAL CANCER METASTATIC
     Dosage: 400 MG/M2 IV BOLUS ON DAY 1
     Route: 040
     Dates: start: 2016

REACTIONS (1)
  - Hepatic function abnormal [Recovering/Resolving]
